FAERS Safety Report 16749905 (Version 1)
Quarter: 2019Q4

REPORT INFORMATION
  Report Type: Spontaneous
  Country: US (occurrence: US)
  Receive Date: 20190827
  Receipt Date: 20190827
  Transmission Date: 20200122
  Serious: Yes (Disabling)
  Sender: FDA-Public Use
  Company Number: None

PATIENT
  Age: 48 Year
  Sex: Female

DRUGS (2)
  1. BENADRYL [Suspect]
     Active Substance: DIPHENHYDRAMINE HYDROCHLORIDE
  2. METOCLOPRAMIDE. [Suspect]
     Active Substance: METOCLOPRAMIDE
     Indication: MIGRAINE
     Dosage: ?          QUANTITY:2 INJECTION(S);OTHER FREQUENCY:AT THE CLINIC;?
     Route: 042

REACTIONS (6)
  - Off label use [None]
  - Impaired work ability [None]
  - Anxiety [None]
  - Panic attack [None]
  - Suicidal ideation [None]
  - Akathisia [None]

NARRATIVE: CASE EVENT DATE: 20190528
